FAERS Safety Report 16090575 (Version 1)
Quarter: 2019Q1

REPORT INFORMATION
  Report Type: Spontaneous
  Country: US (occurrence: US)
  Receive Date: 20190319
  Receipt Date: 20190319
  Transmission Date: 20190418
  Serious: No
  Sender: FDA-Public Use
  Company Number: US-PERRIGO-18US014463

PATIENT
  Age: 58 Year
  Sex: Female
  Weight: 52.15 kg

DRUGS (6)
  1. MUCINEX [Concomitant]
     Active Substance: GUAIFENESIN
     Indication: PROPHYLAXIS
     Dosage: UNK
     Route: 065
  2. LORATADINE AND PSEUDOEPHEDRINE SULFATE [Suspect]
     Active Substance: LORATADINE\PSEUDOEPHEDRINE SULFATE
     Indication: HYPERSENSITIVITY
     Dosage: 1 TABLET, QD
     Route: 048
     Dates: start: 1990, end: 20030129
  3. LORATADINE AND PSEUDOEPHEDRINE SULFATE [Suspect]
     Active Substance: LORATADINE\PSEUDOEPHEDRINE SULFATE
     Indication: NASAL OBSTRUCTION
     Dosage: 1 TABLET. QD
     Route: 048
     Dates: start: 20030130
  4. FLUTICASONE. [Concomitant]
     Active Substance: FLUTICASONE
     Indication: NASOPHARYNGITIS
  5. LORATADINE AND PSEUDOEPHEDRINE SULFATE [Suspect]
     Active Substance: LORATADINE\PSEUDOEPHEDRINE SULFATE
     Indication: POLYP
  6. FLUTICASONE. [Concomitant]
     Active Substance: FLUTICASONE
     Indication: HYPERSENSITIVITY
     Dosage: UNK
     Route: 065

REACTIONS (1)
  - Incorrect product administration duration [Not Recovered/Not Resolved]

NARRATIVE: CASE EVENT DATE: 200302
